FAERS Safety Report 12766437 (Version 1)
Quarter: 2016Q3

REPORT INFORMATION
  Report Type: Spontaneous
  Country: US (occurrence: US)
  Receive Date: 20160915
  Receipt Date: 20160915
  Transmission Date: 20161109
  Serious: No
  Sender: FDA-Public Use
  Company Number: None

PATIENT
  Sex: Female

DRUGS (1)
  1. CIMZIA [Suspect]
     Active Substance: CERTOLIZUMAB PEGOL
     Route: 058

REACTIONS (8)
  - Fatigue [None]
  - Cough [None]
  - Multiple allergies [None]
  - Weight decreased [None]
  - Heart rate abnormal [None]
  - Dyspnoea [None]
  - Insomnia [None]
  - Appetite disorder [None]
